FAERS Safety Report 9165763 (Version 2)
Quarter: 2013Q3

REPORT INFORMATION
  Report Type: Spontaneous
  Country: US (occurrence: None)
  Receive Date: 20130228
  Receipt Date: 20130722
  Transmission Date: 20140515
  Serious: Yes (Other)
  Sender: FDA-Public Use
  Company Number: ACO_34321_2013

PATIENT
  Age: 47 Year
  Sex: Male

DRUGS (3)
  1. AMPYRA [Suspect]
     Indication: PRODUCT USED FOR UNKNOWN INDICATION
     Dosage: 10 MG, BID
     Dates: start: 20120511
  2. TYSABRI (NATALIZUMAB) [Concomitant]
  3. TYSABRI (NATALIZUMAB) [Concomitant]

REACTIONS (5)
  - Convulsion [None]
  - Feeling hot [None]
  - Movement disorder [None]
  - Bladder disorder [None]
  - Drug dose omission [None]
